FAERS Safety Report 5418344-3 (Version None)
Quarter: 2007Q3

REPORT INFORMATION
  Report Type: 
  Country: None (occurrence: None)
  Receive Date: 20070817
  Receipt Date: 20070813
  Transmission Date: 20080115
  Serious: Yes (Other)
  Sender: FDA-Public Use
  Company Number: DE-JNJFOC-20070802481

PATIENT
  Sex: Male

DRUGS (7)
  1. HALDOL [Suspect]
     Indication: MANIA
     Route: 048
  2. ALLOPURINOL [Concomitant]
     Route: 048
  3. METOPROLOL SUCCINATE [Concomitant]
     Route: 048
  4. RAMIPRIL [Concomitant]
     Route: 048
  5. DIPIPERON [Concomitant]
     Route: 048
  6. TORSEMIDE [Concomitant]
     Route: 048
  7. VITAMIN B DUO [Concomitant]
     Route: 048

REACTIONS (1)
  - RHABDOMYOLYSIS [None]
